FAERS Safety Report 6108454-X (Version None)
Quarter: 2009Q1

REPORT INFORMATION
  Report Type: 
  Country: None (occurrence: None)
  Receive Date: 20090309
  Receipt Date: 20090305
  Transmission Date: 20090719
  Serious: No
  Sender: FDA-Public Use
  Company Number: US-B.I. PHARMACEUTICALS,INC./RIDGEFIELD-2009-BP-02654BP

PATIENT
  Age: 81 Year
  Sex: Female

DRUGS (1)
  1. FLOMAX [Suspect]
     Indication: POLLAKIURIA
     Dosage: .4MG
     Route: 048
     Dates: start: 20090126, end: 20090218

REACTIONS (4)
  - ABDOMINAL PAIN [None]
  - FEELING ABNORMAL [None]
  - URINARY INCONTINENCE [None]
  - VISION BLURRED [None]
